FAERS Safety Report 9312084 (Version 1)
Quarter: 2013Q2

REPORT INFORMATION
  Report Type: Spontaneous
  Country: US (occurrence: US)
  Receive Date: 20130528
  Receipt Date: 20130528
  Transmission Date: 20140414
  Serious: Yes (Other)
  Sender: FDA-Public Use
  Company Number: US-PFIZER INC-2013158249

PATIENT
  Age: 61 Year
  Sex: Female

DRUGS (2)
  1. METHOTREXATE SODIUM [Suspect]
     Dosage: WEEKLY
     Route: 047
  2. RITUXIMAB [Concomitant]
     Indication: LYMPHOMA
     Dosage: UNK
     Route: 037

REACTIONS (1)
  - Corneal disorder [Recovering/Resolving]
